FAERS Safety Report 23455328 (Version 4)
Quarter: 2024Q2

REPORT INFORMATION
  Report Type: Spontaneous
  Country: JP (occurrence: None)
  Receive Date: 20240130
  Receipt Date: 20240425
  Transmission Date: 20240716
  Serious: Yes (Death, Other)
  Sender: FDA-Public Use
  Company Number: 2024A022912

PATIENT
  Age: 29318 Day
  Sex: Male
  Weight: 61 kg

DRUGS (15)
  1. ONDEXXYA [Suspect]
     Active Substance: ANDEXANET ALFA
     Indication: Haemorrhage
     Dosage: DOSE UNKNOWN 1760.0MG UNKNOWN
     Route: 042
     Dates: start: 20240106, end: 20240106
  2. HEPARIN SODIUM [Concomitant]
     Active Substance: HEPARIN SODIUM
     Indication: Aortic aneurysm
     Dosage: DOSE UNKNOWN ; 10000 LU; CONTINUOUS ADMINISTRATION
     Route: 041
     Dates: start: 20240106, end: 20240109
  3. UNSPECIFIED INGREDIENT [Concomitant]
     Active Substance: UNSPECIFIED INGREDIENT
     Dosage: DOSE UNKNOWN
     Route: 048
  4. EDOXABAN TOSYLATE [Concomitant]
     Active Substance: EDOXABAN TOSYLATE
  5. SODIUM CHLORIDE [Concomitant]
     Active Substance: SODIUM CHLORIDE
     Indication: Aortic aneurysm
     Dosage: CONTINUOUS ADMINISTRATION
     Route: 041
     Dates: start: 20240106, end: 20240111
  6. CEFAZOLIN SODIUM [Concomitant]
     Active Substance: CEFAZOLIN SODIUM
     Indication: Aortic aneurysm
     Route: 042
     Dates: start: 20240106, end: 20240110
  7. OMEPRAZOLE [Concomitant]
     Active Substance: OMEPRAZOLE
     Indication: Aortic aneurysm
     Route: 042
     Dates: start: 20240106, end: 20240110
  8. ALPROSTADIL [Concomitant]
     Active Substance: ALPROSTADIL
     Indication: Aortic aneurysm
     Route: 042
     Dates: start: 20240106, end: 20240106
  9. SOLITA-T NO.1 [Concomitant]
     Indication: Aortic aneurysm
     Route: 042
     Dates: start: 20240106, end: 20240111
  10. PRECEDEX [Concomitant]
     Active Substance: DEXMEDETOMIDINE HYDROCHLORIDE
     Indication: Aortic aneurysm
     Dosage: CONTINUOUS ADMINISTRATION
     Route: 042
  11. NICARDIPINE HYDROCHLORIDE [Concomitant]
     Active Substance: NICARDIPINE HYDROCHLORIDE
     Indication: Aortic aneurysm
     Route: 042
     Dates: start: 20240106, end: 20240108
  12. REMIFENTANIL [Concomitant]
     Active Substance: REMIFENTANIL
     Indication: Aortic aneurysm
     Route: 042
     Dates: start: 20240106, end: 20240106
  13. REMIFENTANIL [Concomitant]
     Active Substance: REMIFENTANIL
     Indication: Aortic aneurysm
     Route: 042
     Dates: start: 20240106, end: 20240106
  14. FENTANYL [Concomitant]
     Active Substance: FENTANYL\FENTANYL CITRATE
     Indication: Aortic aneurysm
     Route: 042
     Dates: start: 20240106, end: 20240106
  15. ALBUMINAR [Concomitant]
     Active Substance: ALBUMIN HUMAN
     Indication: Aortic aneurysm
     Dosage: NUMBER OF SEPARATE DOSAGES UNKNOWN
     Route: 042
     Dates: start: 20240106, end: 20240106

REACTIONS (2)
  - Aortic aneurysm [Fatal]
  - Heparin resistance [Recovered/Resolved]

NARRATIVE: CASE EVENT DATE: 20240105
